FAERS Safety Report 11885181 (Version 2)
Quarter: 2016Q1

REPORT INFORMATION
  Report Type: Spontaneous
  Country: DE (occurrence: DE)
  Receive Date: 20160104
  Receipt Date: 20160114
  Transmission Date: 20160526
  Serious: No
  Sender: FDA-Public Use
  Company Number: PHHY2015DE143245

PATIENT
  Sex: Female
  Weight: 70 kg

DRUGS (1)
  1. COSENTYX [Suspect]
     Active Substance: SECUKINUMAB
     Indication: PSORIASIS
     Dosage: 300 MG, QMO
     Route: 058
     Dates: start: 20150901, end: 20151028

REACTIONS (9)
  - Candida infection [Unknown]
  - Angular cheilitis [Unknown]
  - Eczema [Unknown]
  - Eye swelling [Recovered/Resolved]
  - Wound secretion [Recovered/Resolved]
  - Oral candidiasis [Not Recovered/Not Resolved]
  - Erythema [Unknown]
  - Beta haemolytic streptococcal infection [Unknown]
  - Umbilical discharge [Unknown]

NARRATIVE: CASE EVENT DATE: 20151019
